FAERS Safety Report 6375692-0 (Version None)
Quarter: 2009Q3

REPORT INFORMATION
  Report Type: 
  Country: None (occurrence: None)
  Receive Date: 20090924
  Receipt Date: 20090912
  Transmission Date: 20100115
  Serious: Yes (Death, Life-Threatening, Hospitalization, Other)
  Sender: FDA-Public Use
  Company Number: US-ALEXION-A200900635

PATIENT
  Sex: Female

DRUGS (5)
  1. SOLIRIS [Suspect]
     Indication: PAROXYSMAL NOCTURNAL HAEMOGLOBINURIA
     Dosage: 600 MG, QW X4
     Route: 042
     Dates: start: 20080710, end: 20080801
  2. SOLIRIS [Suspect]
     Dosage: 900 MG, Q2W
     Route: 042
     Dates: start: 20080807
  3. SOLIRIS [Suspect]
     Dosage: 900 MG, Q9D
     Route: 042
     Dates: start: 20090701
  4. SOLIRIS [Suspect]
     Dosage: 900 MG, SINGLE
     Route: 042
     Dates: start: 20090806, end: 20090806
  5. SOLIRIS [Suspect]
     Dosage: 900 MG, SINGLE, SUPPLEMENTAL DOSE
     Route: 042
     Dates: start: 20090808, end: 20090808

REACTIONS (14)
  - ABDOMINAL WALL HAEMATOMA [None]
  - ARTHRALGIA [None]
  - CARDIAC ARREST [None]
  - CATHETER SITE INFECTION [None]
  - FLUID RETENTION [None]
  - HYPOTENSION [None]
  - KLEBSIELLA SEPSIS [None]
  - LOSS OF CONSCIOUSNESS [None]
  - LUNG INFILTRATION [None]
  - NEUTROPENIA [None]
  - PNEUMONIA [None]
  - RESPIRATORY ACIDOSIS [None]
  - RESPIRATORY FAILURE [None]
  - SEPTIC SHOCK [None]
